FAERS Safety Report 16546688 (Version 1)
Quarter: 2019Q3

REPORT INFORMATION
  Report Type: Spontaneous
  Country: US (occurrence: US)
  Receive Date: 20190709
  Receipt Date: 20190709
  Transmission Date: 20191004
  Serious: No
  Sender: FDA-Public Use
  Company Number: US-ASTELLAS-2019US001531

PATIENT
  Age: 88 Year
  Sex: Male

DRUGS (2)
  1. MYRBETRIQ [Suspect]
     Active Substance: MIRABEGRON
     Indication: PRODUCT USED FOR UNKNOWN INDICATION
     Dosage: 25 MG, TWICE DAILY, AT MORNING AND NIGHT
     Route: 065
  2. MYRBETRIQ [Suspect]
     Active Substance: MIRABEGRON
     Dosage: 50 MG, TWICE DAILY AT MORNING AND NIGHT
     Route: 065

REACTIONS (3)
  - Inappropriate schedule of product administration [Unknown]
  - Drug ineffective [Unknown]
  - Pollakiuria [Not Recovered/Not Resolved]
